FAERS Safety Report 8920224 (Version 1)
Quarter: 2012Q4

REPORT INFORMATION
  Report Type: 
  Country: US (occurrence: US)
  Receive Date: 20121122
  Receipt Date: 20121122
  Transmission Date: 20130627
  Serious: Yes (Death)
  Sender: FDA-Public Use
  Company Number: PHEH2012US022656

PATIENT
  Sex: Female

DRUGS (13)
  1. AFINITOR [Suspect]
     Indication: BREAST CANCER
     Dosage: 1 DF (10 mg), every day
     Route: 048
  2. EDECRIN [Concomitant]
  3. EXEMESTANE [Concomitant]
  4. ZYRTEC [Concomitant]
  5. OMEPRAZOLE [Concomitant]
  6. FENTANYL [Concomitant]
  7. VITAMIN E [Concomitant]
  8. RHINOCORT AQUA [Concomitant]
  9. OXYCODONE [Concomitant]
  10. VITAMIN D3 [Concomitant]
  11. STOOL SOFTENER [Concomitant]
  12. VITAMIN B-6 [Concomitant]
  13. TIZANIDINE [Concomitant]

REACTIONS (1)
  - Death [Fatal]
